FAERS Safety Report 19908388 (Version 7)
Quarter: 2025Q2

REPORT INFORMATION
  Report Type: Report from Study
  Country: CA (occurrence: CA)
  Receive Date: 20211001
  Receipt Date: 20250407
  Transmission Date: 20250716
  Serious: Yes (Hospitalization)
  Sender: OTSUKA
  Company Number: CA-OTSUKA-2021_033469

PATIENT
  Sex: Male

DRUGS (1)
  1. ARIPIPRAZOLE [Suspect]
     Active Substance: ARIPIPRAZOLE
     Indication: Product used for unknown indication
     Route: 030
     Dates: start: 20211021

REACTIONS (6)
  - Sleep deficit [Not Recovered/Not Resolved]
  - Disorientation [Not Recovered/Not Resolved]
  - Self-destructive behaviour [Not Recovered/Not Resolved]
  - Aggression [Not Recovered/Not Resolved]
  - Neglect of personal appearance [Not Recovered/Not Resolved]
  - Abnormal behaviour [Unknown]
